FAERS Safety Report 9928033 (Version 1)
Quarter: 2014Q1

REPORT INFORMATION
  Report Type: Spontaneous
  Country: DE (occurrence: None)
  Receive Date: 20140224
  Receipt Date: 20140224
  Transmission Date: 20141002
  Serious: No
  Sender: FDA-Public Use
  Company Number: 1402-0358

PATIENT
  Age: 85 Year
  Sex: Male

DRUGS (1)
  1. EYLEA (AFLIBERCEPT) (SOLUTION FOR INJECTION) (AFLIBERCEPT) [Suspect]
     Indication: AGE-RELATED MACULAR DEGENERATION
     Dosage: 1 IN 4WK
     Dates: start: 20130326

REACTIONS (3)
  - Blindness transient [None]
  - Gait disturbance [None]
  - Vision blurred [None]
